FAERS Safety Report 10915269 (Version 1)
Quarter: 2015Q1

REPORT INFORMATION
  Report Type: Spontaneous
  Country: US (occurrence: None)
  Receive Date: 20150311
  Receipt Date: 20150311
  Transmission Date: 20150721
  Serious: Yes (Other)
  Sender: FDA-Public Use
  Company Number: None

PATIENT
  Age: 76 Year
  Sex: Male
  Weight: 79.83 kg

DRUGS (1)
  1. XTANDI [Suspect]
     Active Substance: ENZALUTAMIDE
     Indication: PROSTATE CANCER
     Dosage: FEBRUARY 23 - PRESENT
     Route: 048

REACTIONS (4)
  - Peripheral swelling [None]
  - Diarrhoea [None]
  - Joint swelling [None]
  - Rash [None]

NARRATIVE: CASE EVENT DATE: 20150306
